FAERS Safety Report 8530159-6 (Version None)
Quarter: 2012Q3

REPORT INFORMATION
  Report Type: 
  Country: None (occurrence: None)
  Receive Date: 20120723
  Receipt Date: 20120717
  Transmission Date: 20120928
  Serious: Yes (Death)
  Sender: FDA-Public Use
  Company Number: US-PFIZER INC-2012172783

PATIENT
  Sex: Female
  Weight: 77.098 kg

DRUGS (2)
  1. REVATIO [Suspect]
     Indication: CARDIOVASCULAR DISORDER
     Dosage: UNK
     Route: 048
     Dates: start: 20101101
  2. TRACLEER [Concomitant]
     Indication: LUNG DISORDER
     Dosage: UNK
     Route: 048

REACTIONS (2)
  - LUNG DISORDER [None]
  - OEDEMA [None]
